FAERS Safety Report 26123071 (Version 2)
Quarter: 2025Q4

REPORT INFORMATION
  Report Type: Report from Study
  Country: US (occurrence: US)
  Receive Date: 20251204
  Receipt Date: 20251209
  Transmission Date: 20260118
  Serious: Yes (Other)
  Sender: NOVARTIS
  Company Number: US-002147023-NVSC2025US185131

PATIENT
  Sex: Female

DRUGS (2)
  1. KESIMPTA [Suspect]
     Active Substance: OFATUMUMAB
     Indication: Product used for unknown indication
     Dosage: UNK
     Route: 065
  2. KESIMPTA [Suspect]
     Active Substance: OFATUMUMAB
     Dosage: 20 MG/KG
     Route: 065

REACTIONS (6)
  - Multiple sclerosis [Unknown]
  - Pain [Unknown]
  - Brain fog [Unknown]
  - Anosmia [Unknown]
  - Feeling abnormal [Recovering/Resolving]
  - Inappropriate schedule of product administration [Unknown]
